FAERS Safety Report 6093178-8 (Version None)
Quarter: 2009Q1

REPORT INFORMATION
  Report Type: 
  Country: None (occurrence: None)
  Receive Date: 20090223
  Receipt Date: 20090219
  Transmission Date: 20090719
  Serious: Yes (Hospitalization)
  Sender: FDA-Public Use
  Company Number: SP02265

PATIENT
  Age: 68 Year
  Sex: Female

DRUGS (2)
  1. MESALAMINE [Suspect]
     Indication: COLITIS ULCERATIVE
     Dosage: 3 GM ORAL
     Route: 048
     Dates: start: 20060101
  2. CARBAMAZEPINE [Concomitant]

REACTIONS (1)
  - TOLOSA-HUNT SYNDROME [None]
